FAERS Safety Report 8008402-1 (Version None)
Quarter: 2011Q4

REPORT INFORMATION
  Report Type: 
  Country: None (occurrence: None)
  Receive Date: 20111227
  Receipt Date: 20111215
  Transmission Date: 20120403
  Serious: Yes (Other)
  Sender: FDA-Public Use
  Company Number: US-ASTRAZENECA-2011SE73090

PATIENT
  Age: 75 Year
  Sex: Female

DRUGS (5)
  1. LOVASTATIN [Concomitant]
  2. RHINOCORT [Suspect]
     Route: 045
  3. PULMICORT [Concomitant]
  4. NEXIUM [Suspect]
     Route: 048
  5. ALBUTEROL [Concomitant]

REACTIONS (4)
  - FEELING ABNORMAL [None]
  - HAEMORRHAGE [None]
  - NEOPLASM MALIGNANT [None]
  - DRUG HYPERSENSITIVITY [None]
